FAERS Safety Report 6781978-8 (Version None)
Quarter: 2010Q2

REPORT INFORMATION
  Report Type: 
  Country: None (occurrence: None)
  Receive Date: 20100618
  Receipt Date: 20100618
  Transmission Date: 20101027
  Serious: Yes (Life-Threatening)
  Sender: FDA-Public Use
  Company Number: None

PATIENT
  Age: 62 Year
  Sex: Male
  Weight: 52.16 kg

DRUGS (1)
  1. CETUXIMAB [Suspect]
     Indication: CHEMOTHERAPY
     Dosage: 640 MG ONCE IV
     Route: 042
     Dates: start: 20100607, end: 20100607

REACTIONS (1)
  - ANAPHYLACTIC REACTION [None]
